FAERS Safety Report 5662291-9 (Version None)
Quarter: 2008Q1

REPORT INFORMATION
  Report Type: 
  Country: None (occurrence: None)
  Receive Date: 20080312
  Receipt Date: 20080303
  Transmission Date: 20080703
  Serious: Yes (Hospitalization, Other)
  Sender: FDA-Public Use
  Company Number: US-MERCK-0706USA02097

PATIENT
  Age: 57 Year
  Sex: Female
  Weight: 76 kg

DRUGS (3)
  1. FOSAMAX [Suspect]
     Indication: OSTEOPOROSIS
     Route: 048
     Dates: start: 20000101, end: 20070801
  2. PREMARIN [Concomitant]
     Indication: HORMONE REPLACEMENT THERAPY
     Route: 065
     Dates: start: 19890101, end: 20050101
  3. SYNTHROID [Concomitant]
     Indication: HYPOTHYROIDISM
     Route: 065

REACTIONS (10)
  - CERVICAL SPINAL STENOSIS [None]
  - HYPERLIPIDAEMIA [None]
  - HYPERTENSION [None]
  - OSTEONECROSIS [None]
  - PAIN [None]
  - SACROILIITIS [None]
  - STRESS FRACTURE [None]
  - TOOTH LOSS [None]
  - VITAMIN D DEFICIENCY [None]
  - WEIGHT INCREASED [None]
